FAERS Safety Report 15147125 (Version 1)
Quarter: 2018Q3

REPORT INFORMATION
  Report Type: Spontaneous
  Country: US (occurrence: US)
  Receive Date: 20180716
  Receipt Date: 20180716
  Transmission Date: 20181010
  Serious: No
  Sender: FDA-Public Use
  Company Number: US-JNJFOC-20180634076

PATIENT
  Age: 86 Year
  Sex: Female
  Weight: 54.43 kg

DRUGS (2)
  1. PEPCID AC MAXIMUM STRENGTH [Suspect]
     Active Substance: FAMOTIDINE
     Indication: DYSPEPSIA
     Dosage: 1 TABLET IN THE MORNING AND 1 TABLET AT 6:30PM
     Route: 065
     Dates: start: 20180624, end: 20180624
  2. PEPCID AC MAXIMUM STRENGTH [Suspect]
     Active Substance: FAMOTIDINE
     Indication: DYSPEPSIA
     Route: 065
     Dates: start: 20180621

REACTIONS (5)
  - Fatigue [Recovered/Resolved]
  - Feeling hot [Recovered/Resolved]
  - Asthenia [Recovered/Resolved]
  - Cold sweat [Recovered/Resolved]
  - Arthralgia [Recovered/Resolved]

NARRATIVE: CASE EVENT DATE: 20180624
